FAERS Safety Report 26160529 (Version 1)
Quarter: 2025Q4

REPORT INFORMATION
  Report Type: Spontaneous
  Country: GB (occurrence: GB)
  Receive Date: 20251216
  Receipt Date: 20251216
  Transmission Date: 20260117
  Serious: Yes (Other)
  Sender: SAMSUNG BIOEPIS
  Company Number: None

PATIENT
  Sex: Female

DRUGS (1)
  1. INFLIXIMAB [Suspect]
     Active Substance: INFLIXIMAB
     Indication: Product used for unknown indication

REACTIONS (4)
  - Anaphylactic reaction [Recovering/Resolving]
  - Flushing [Recovering/Resolving]
  - Throat tightness [Recovering/Resolving]
  - Chest pain [Recovering/Resolving]

NARRATIVE: CASE EVENT DATE: 20251203
